FAERS Safety Report 12449606 (Version 1)
Quarter: 2016Q2

REPORT INFORMATION
  Report Type: Other
  Country: BR (occurrence: BR)
  Receive Date: 20160609
  Receipt Date: 20160609
  Transmission Date: 20160815
  Serious: Yes (Hospitalization)
  Sender: FDA-Public Use
  Company Number: BR-LUPIN PHARMACEUTICALS INC.-2016-01684

PATIENT
  Age: 16 Year
  Sex: Female

DRUGS (1)
  1. DROSPIRENONE + ETHINYLESTRADIOL [Suspect]
     Active Substance: DROSPIRENONE\ETHINYL ESTRADIOL
     Indication: CONTRACEPTION
     Dosage: ETHINYLESTRADIOL 0.02 MG +DROSPIRENONE?3 MG
     Route: 065

REACTIONS (1)
  - Pulmonary embolism [Recovered/Resolved]
